FAERS Safety Report 5075339-X (Version None)
Quarter: 2006Q3

REPORT INFORMATION
  Report Type: 
  Country: None (occurrence: None)
  Receive Date: 20060809
  Receipt Date: 20051208
  Transmission Date: 20061208
  Serious: No
  Sender: FDA-Public Use
  Company Number: US-AMGEN-KDL161094

PATIENT

DRUGS (1)
  1. PROCRIT [Suspect]
     Indication: ANAEMIA

REACTIONS (5)
  - DIARRHOEA [None]
  - NAUSEA [None]
  - URTICARIA [None]
  - VIRAL RASH [None]
  - VOMITING [None]
